FAERS Safety Report 9396188 (Version 3)
Quarter: 2013Q3

REPORT INFORMATION
  Report Type: Spontaneous
  Country: CA (occurrence: CA)
  Receive Date: 20130711
  Receipt Date: 20130730
  Transmission Date: 20140515
  Serious: Yes (Hospitalization, Other)
  Sender: FDA-Public Use
  Company Number: CA-BAXTER-2013BAX025865

PATIENT
  Sex: Male

DRUGS (1)
  1. DIANEAL PD4 SOLUTION WITH 1.5% DEXTROSE AND 2.5 MEQ/L CALCIUM [Suspect]
     Indication: PERITONEAL DIALYSIS
     Route: 033

REACTIONS (8)
  - Cardio-respiratory arrest [Unknown]
  - Loss of consciousness [Recovering/Resolving]
  - Multimorbidity [Unknown]
  - Hypotension [Recovering/Resolving]
  - Peritonitis [Unknown]
  - Sepsis [Unknown]
  - Pruritus generalised [Unknown]
  - Infusion related reaction [Unknown]
